FAERS Safety Report 18877000 (Version 1)
Quarter: 2021Q1

REPORT INFORMATION
  Report Type: Spontaneous
  Country: DK (occurrence: DK)
  Receive Date: 20210211
  Receipt Date: 20210211
  Transmission Date: 20210420
  Serious: Yes (Disabling)
  Sender: FDA-Public Use
  Company Number: NVSC2021DK027885

PATIENT
  Age: 73 Year
  Sex: Female

DRUGS (4)
  1. CLARITHROMYCIN ^HEXAL^ [Suspect]
     Active Substance: CLARITHROMYCIN
     Dosage: UNK
  2. LINEZOLID GLENMARK [Suspect]
     Active Substance: LINEZOLID
     Indication: TUBERCULOSIS
     Dosage: 1200 MG, QD
     Route: 048
     Dates: start: 20180430, end: 20190710
  3. CLARITHROMYCIN ^HEXAL^ [Suspect]
     Active Substance: CLARITHROMYCIN
     Indication: TUBERCULOSIS
     Dosage: 500 MG, QD
     Route: 048
     Dates: start: 20180430
  4. AMIKAN [Suspect]
     Active Substance: AMIKACIN SULFATE
     Indication: TUBERCULOSIS
     Dosage: 5250 MG, QW (COMPASSIONATE USE)/ ANFARM HELLLAS
     Route: 042
     Dates: start: 20180430, end: 201812

REACTIONS (3)
  - Balance disorder [Recovered/Resolved]
  - Neuralgia [Recovered/Resolved]
  - Hypoaesthesia [Not Recovered/Not Resolved]

NARRATIVE: CASE EVENT DATE: 2019
